FAERS Safety Report 7725553-7 (Version None)
Quarter: 2011Q3

REPORT INFORMATION
  Report Type: 
  Country: None (occurrence: None)
  Receive Date: 20110902
  Receipt Date: 20110823
  Transmission Date: 20111222
  Serious: Yes (Life-Threatening, Hospitalization, Disabling)
  Sender: FDA-Public Use
  Company Number: GB-RANBAXY-2011R1-47286

PATIENT
  Age: 63 Year
  Sex: Female
  Weight: 64 kg

DRUGS (15)
  1. CYCLOSPORINE [Suspect]
     Indication: RENAL TRANSPLANT
     Dosage: 75 MG, BID
     Route: 048
     Dates: end: 20110426
  2. AUGMENTIN '125' [Concomitant]
     Indication: PRODUCT USED FOR UNKNOWN INDICATION
     Dosage: 1.2 G, SINGLE
     Route: 042
     Dates: start: 20110423, end: 20110423
  3. KLIOVANCE [Concomitant]
     Indication: PRODUCT USED FOR UNKNOWN INDICATION
     Dosage: 1 DF, QD
     Route: 065
     Dates: end: 20110424
  4. PIPERACILLIN AND TAZOBACTAM [Concomitant]
     Indication: PNEUMONIA
     Dosage: UNK
     Route: 042
     Dates: start: 20110424, end: 20110425
  5. ALLOPURINOL [Concomitant]
     Indication: GOUT
     Dosage: 100 MG, BID
     Route: 048
  6. ACETAMINOPHEN [Concomitant]
     Indication: PRODUCT USED FOR UNKNOWN INDICATION
     Dosage: 1 G, QID
     Route: 048
  7. CLARITHROMYCIN [Suspect]
     Indication: PNEUMONIA
     Dosage: 500 MG, BID
     Route: 065
     Dates: start: 20110423, end: 20110428
  8. COLCHICINE [Suspect]
     Indication: GOUT
     Dosage: 500 UG, BID
     Route: 048
     Dates: start: 20110224, end: 20110424
  9. ATENOLOL [Concomitant]
     Indication: HYPERTENSION
     Dosage: UNK
     Route: 048
  10. DOTHIEPIN HYDROCHLORIDE [Concomitant]
     Indication: DEPRESSION
     Dosage: UNK
     Route: 048
  11. LEVETIRACETAM [Concomitant]
     Indication: PRODUCT USED FOR UNKNOWN INDICATION
     Dosage: UNK
     Route: 048
  12. METRONIDAZOLE [Concomitant]
     Indication: GASTROINTESTINAL INFECTION
     Dosage: UNK
     Route: 042
     Dates: start: 20110423, end: 20110424
  13. HYOSCINE [Concomitant]
     Indication: PRODUCT USED FOR UNKNOWN INDICATION
     Dosage: UNK
     Route: 065
  14. MOXONIDINE [Concomitant]
     Indication: HYPERTENSION
     Dosage: UNK
     Route: 048
  15. LEVOTHYROXINE SODIUM [Concomitant]
     Indication: PRODUCT USED FOR UNKNOWN INDICATION
     Dosage: UNK
     Route: 065

REACTIONS (14)
  - RENAL FAILURE ACUTE [None]
  - ASTHENIA [None]
  - MALAISE [None]
  - BLOOD CALCIUM DECREASED [None]
  - PARAPARESIS [None]
  - VOMITING [None]
  - DRUG INTERACTION [None]
  - BLOOD CREATINE PHOSPHOKINASE INCREASED [None]
  - DIARRHOEA [None]
  - NEUROPATHY PERIPHERAL [None]
  - PANCYTOPENIA [None]
  - GUILLAIN-BARRE SYNDROME [None]
  - NAUSEA [None]
  - METABOLIC ACIDOSIS [None]
